FAERS Safety Report 11272671 (Version 1)
Quarter: 2015Q3

REPORT INFORMATION
  Report Type: Spontaneous
  Country: TR (occurrence: TR)
  Receive Date: 20150715
  Receipt Date: 20150715
  Transmission Date: 20151125
  Serious: Yes (Other)
  Sender: FDA-Public Use
  Company Number: TR-SUN PHARMACEUTICAL INDUSTRIES LTD-2015R1-100411

PATIENT
  Age: 44 Year
  Sex: Male

DRUGS (1)
  1. PREDNISONE. [Suspect]
     Active Substance: PREDNISONE
     Indication: VIITH NERVE PARALYSIS
     Dosage: UNK
     Route: 065

REACTIONS (4)
  - Vision blurred [Recovered/Resolved]
  - Coronary artery disease [Unknown]
  - Chest pain [Recovered/Resolved]
  - Fatigue [Recovered/Resolved]
